FAERS Safety Report 14356318 (Version 1)
Quarter: 2018Q1

REPORT INFORMATION
  Report Type: Spontaneous
  Country: US (occurrence: US)
  Receive Date: 20180105
  Receipt Date: 20180105
  Transmission Date: 20180509
  Serious: No
  Sender: FDA-Public Use
  Company Number: US-ALLERGAN-1733793US

PATIENT
  Age: 27 Year
  Sex: Female
  Weight: 72.56 kg

DRUGS (1)
  1. KYBELLA [Suspect]
     Active Substance: DEOXYCHOLIC ACID
     Indication: FAT TISSUE INCREASED
     Dosage: UNK, SINGLE
     Route: 058
     Dates: start: 201702, end: 201702

REACTIONS (5)
  - Muscular weakness [Not Recovered/Not Resolved]
  - Migraine [Not Recovered/Not Resolved]
  - Injection site swelling [Not Recovered/Not Resolved]
  - Deformity [Not Recovered/Not Resolved]
  - Injection site induration [Not Recovered/Not Resolved]

NARRATIVE: CASE EVENT DATE: 201702
